FAERS Safety Report 17287226 (Version 2)
Quarter: 2020Q1

REPORT INFORMATION
  Report Type: Spontaneous
  Country: US (occurrence: US)
  Receive Date: 20200120
  Receipt Date: 20200122
  Transmission Date: 20200409
  Serious: Yes (Hospitalization)
  Sender: FDA-Public Use
  Company Number: US-ROCHE-2526987

PATIENT
  Age: 75 Year
  Sex: Female

DRUGS (23)
  1. CALCIUM [Concomitant]
     Active Substance: CALCIUM
  2. FERROUS SULFATE. [Concomitant]
     Active Substance: FERROUS SULFATE
  3. ASPIRIN [ACETYLSALICYLIC ACID] [Concomitant]
     Active Substance: ASPIRIN
  4. ATORVASTATIN [Concomitant]
     Active Substance: ATORVASTATIN
  5. OMEGA 3 [DOCOSAHEXAENOIC ACID;EICOSAPENTAENOIC ACID] [Concomitant]
     Active Substance: DOCONEXENT\ICOSAPENT
  6. OMEPRAZOLE. [Concomitant]
     Active Substance: OMEPRAZOLE
  7. VITAMIN C [Concomitant]
     Active Substance: ASCORBIC ACID
  8. CARVEDILOL. [Concomitant]
     Active Substance: CARVEDILOL
     Route: 065
  9. HYDRALAZINE [Concomitant]
     Active Substance: HYDRALAZINE HYDROCHLORIDE
  10. CYCLOBENZAPRINE. [Concomitant]
     Active Substance: CYCLOBENZAPRINE
  11. ELIQUIS [Concomitant]
     Active Substance: APIXABAN
  12. ALLOPURINOL. [Concomitant]
     Active Substance: ALLOPURINOL
  13. LASIX [Concomitant]
     Active Substance: FUROSEMIDE
  14. LUMIGAN [Concomitant]
     Active Substance: BIMATOPROST
  15. OYSTER SHELL [Concomitant]
     Active Substance: OSTREA EDULIS SHELL
  16. FUROSEMIDE. [Concomitant]
     Active Substance: FUROSEMIDE
  17. METFORMIN [Concomitant]
     Active Substance: METFORMIN HYDROCHLORIDE
     Route: 065
  18. NOVOLOG [Concomitant]
     Active Substance: INSULIN ASPART
  19. VITAMIN D3 [Concomitant]
     Active Substance: CHOLECALCIFEROL
  20. ESBRIET [Suspect]
     Active Substance: PIRFENIDONE
     Indication: IDIOPATHIC PULMONARY FIBROSIS
     Route: 048
     Dates: start: 20160930
  21. PANTOPRAZOLE [Concomitant]
     Active Substance: PANTOPRAZOLE
  22. CHLORIDE [Concomitant]
     Active Substance: CHLORIDE ION
  23. SIMBRINZA [Concomitant]
     Active Substance: BRIMONIDINE TARTRATE\BRINZOLAMIDE

REACTIONS (1)
  - Hypertension [Unknown]

NARRATIVE: CASE EVENT DATE: 201906
